FAERS Safety Report 5493947-9 (Version None)
Quarter: 2007Q4

REPORT INFORMATION
  Report Type: 
  Country: None (occurrence: None)
  Receive Date: 20071023
  Receipt Date: 20071011
  Transmission Date: 20080405
  Serious: Yes (Other)
  Sender: FDA-Public Use
  Company Number: US-PFIZER INC-2007086882

PATIENT
  Sex: Female
  Weight: 79.545 kg

DRUGS (12)
  1. CHANTIX [Suspect]
     Indication: SMOKING CESSATION THERAPY
     Route: 048
     Dates: start: 20070901, end: 20071010
  2. MORPHINE [Concomitant]
     Route: 048
  3. MORPHINE [Concomitant]
     Route: 051
  4. NORCO [Concomitant]
  5. LYRICA [Concomitant]
  6. LOPID [Concomitant]
  7. DYAZIDE [Concomitant]
  8. DAYPRO [Concomitant]
  9. ZOLPIDEM TARTRATE [Concomitant]
  10. VALIUM [Concomitant]
  11. BACLOFEN [Concomitant]
     Indication: MUSCLE SPASMS
  12. BENADRYL [Concomitant]
     Indication: HYPERSENSITIVITY

REACTIONS (3)
  - ABNORMAL DREAMS [None]
  - NAUSEA [None]
  - SLEEP DISORDER [None]
